FAERS Safety Report 8916330 (Version 1)
Quarter: 2012Q4

REPORT INFORMATION
  Report Type: 
  Country: TW (occurrence: TW)
  Receive Date: 20121120
  Receipt Date: 20121120
  Transmission Date: 20130627
  Serious: Yes (Hospitalization)
  Sender: FDA-Public Use
  Company Number: TW-PFIZER INC-2012287855

PATIENT
  Age: 74 Year
  Sex: Male

DRUGS (1)
  1. SUNITINIB MALATE [Suspect]
     Indication: METASTATIC RENAL CELL CARCINOMA
     Dosage: 25 mg, once daily for 4 weeks followed by a break of 2 weeks
     Dates: start: 2011

REACTIONS (3)
  - Scrotal pain [Recovered/Resolved]
  - Scrotal swelling [Recovered/Resolved]
  - Scrotal erythema [Recovered/Resolved]
